FAERS Safety Report 6076656-7 (Version None)
Quarter: 2009Q1

REPORT INFORMATION
  Report Type: 
  Country: None (occurrence: None)
  Receive Date: 20090213
  Receipt Date: 20090202
  Transmission Date: 20090719
  Serious: Yes (Death)
  Sender: FDA-Public Use
  Company Number: PHHY2009US03245

PATIENT
  Sex: Female

DRUGS (8)
  1. EXJADE [Suspect]
     Dosage: 1000 MG, QD
     Route: 048
     Dates: start: 20081215, end: 20090116
  2. CALCIUM CARBONATE W/VITAMIN D NOS [Concomitant]
     Dosage: 200 MG, BID
     Route: 048
  3. CENTRUM SILVER [Concomitant]
     Dosage: 1 DF, QD
     Route: 048
  4. CEPHALEXIN [Concomitant]
     Dosage: 10 ML, QID
  5. CLACKS [Concomitant]
     Dosage: 5 ML, QID
     Route: 048
  6. FOSAMAX [Concomitant]
     Dosage: 1 DF, UNK
     Route: 048
  7. MEGACE [Concomitant]
     Dosage: 20 ML, QD
     Route: 048
  8. OXYGEN [Concomitant]

REACTIONS (4)
  - ANAEMIA [None]
  - HAEMOGLOBIN DECREASED [None]
  - MYELODYSPLASTIC SYNDROME [None]
  - NEUTROPENIA [None]
